FAERS Safety Report 16714744 (Version 1)
Quarter: 2019Q3

REPORT INFORMATION
  Report Type: Spontaneous
  Country: FR (occurrence: FR)
  Receive Date: 20190819
  Receipt Date: 20190819
  Transmission Date: 20191004
  Serious: Yes (Other)
  Sender: FDA-Public Use
  Company Number: PHHY2019FR188566

PATIENT
  Age: 54 Year
  Sex: Female

DRUGS (2)
  1. LANSOPRAZOLE. [Suspect]
     Active Substance: LANSOPRAZOLE
     Indication: PRODUCT USED FOR UNKNOWN INDICATION
     Dosage: 1 DF, QD (IN MORNING)
     Route: 065
  2. IRESSA [Interacting]
     Active Substance: GEFITINIB
     Indication: ADENOCARCINOMA
     Dosage: 250 MG, QD (IN MORNING)
     Route: 048

REACTIONS (6)
  - Drug interaction [Unknown]
  - Drug ineffective [Unknown]
  - Dizziness [Unknown]
  - Malignant neoplasm progression [Unknown]
  - Headache [Unknown]
  - Metastases to central nervous system [Unknown]

NARRATIVE: CASE EVENT DATE: 201906
